FAERS Safety Report 19119720 (Version 1)
Quarter: 2021Q2

REPORT INFORMATION
  Report Type: Spontaneous
  Country: US (occurrence: US)
  Receive Date: 20210412
  Receipt Date: 20210412
  Transmission Date: 20210717
  Serious: Yes (Other)
  Sender: FDA-Public Use
  Company Number: US-SHILPA MEDICARE LIMITED-SML-US-2021-00388

PATIENT
  Age: 69 Year
  Sex: Male

DRUGS (7)
  1. IMATINIB, UNKNOWN [Suspect]
     Active Substance: IMATINIB
     Indication: CHRONIC MYELOID LEUKAEMIA
     Route: 065
  2. IMATINIB, UNKNOWN [Suspect]
     Active Substance: IMATINIB
     Dosage: RESUMED
  3. PONATINIB [Suspect]
     Active Substance: PONATINIB
     Indication: CHRONIC MYELOID LEUKAEMIA
     Route: 065
  4. IMATINIB, UNKNOWN [Suspect]
     Active Substance: IMATINIB
     Dosage: AFTER 2 MONTHS, IMATINIB WAS REDUCED
  5. DASATINIB. [Suspect]
     Active Substance: DASATINIB
     Indication: CHRONIC MYELOID LEUKAEMIA
     Route: 065
  6. PONATINIB [Suspect]
     Active Substance: PONATINIB
     Dosage: AFTER 2.5 YEARS, DOSE REDUCED
     Route: 065
  7. NILOTINIB [Suspect]
     Active Substance: NILOTINIB
     Indication: CHRONIC MYELOID LEUKAEMIA
     Route: 065

REACTIONS (3)
  - Drug resistance [Unknown]
  - Myeloproliferative neoplasm [Recovered/Resolved]
  - Thrombocytopenia [Recovered/Resolved]
